FAERS Safety Report 11112055 (Version 1)
Quarter: 2015Q2

REPORT INFORMATION
  Report Type: Spontaneous
  Country: TR (occurrence: TR)
  Receive Date: 20150514
  Receipt Date: 20150514
  Transmission Date: 20150821
  Serious: Yes (Death)
  Sender: FDA-Public Use
  Company Number: TR-PFIZER INC-2015034597

PATIENT
  Age: 81 Year
  Sex: Male

DRUGS (4)
  1. ERAXIS [Suspect]
     Active Substance: ANIDULAFUNGIN
     Indication: SYSTEMIC CANDIDA
     Dosage: 10 MG, 1X/DAY
     Route: 042
     Dates: start: 20150103, end: 20150109
  2. PRIMSEL [Concomitant]
     Dosage: UNK, 3X/DAY
     Route: 042
  3. PRIMASEF [Concomitant]
     Dosage: UNK, 2X/DAY
     Route: 042
  4. SEROQUEL [Concomitant]
     Active Substance: QUETIAPINE FUMARATE
     Dosage: UNK, 1X/DAY

REACTIONS (4)
  - Erythema [Not Recovered/Not Resolved]
  - Pruritus [Not Recovered/Not Resolved]
  - Haemorrhage intracranial [Fatal]
  - Swelling [Not Recovered/Not Resolved]

NARRATIVE: CASE EVENT DATE: 20150103
